FAERS Safety Report 6501789-8 (Version None)
Quarter: 2009Q4

REPORT INFORMATION
  Report Type: 
  Country: None (occurrence: None)
  Receive Date: 20091216
  Receipt Date: 20091207
  Transmission Date: 20100525
  Serious: Yes (Hospitalization)
  Sender: FDA-Public Use
  Company Number: TR-PERRIGO-09TR005518

PATIENT
  Age: 17 Year
  Sex: Female

DRUGS (1)
  1. ACETAMINOPHEN 650MG ER 544 [Suspect]
     Indication: INTENTIONAL OVERDOSE
     Dosage: 10,400 MG, SINGLE
     Route: 048

REACTIONS (4)
  - HEPATIC ENZYME INCREASED [None]
  - HEPATIC FAILURE [None]
  - INTENTIONAL OVERDOSE [None]
  - SINUS TACHYCARDIA [None]
